FAERS Safety Report 6506614-7 (Version None)
Quarter: 2009Q4

REPORT INFORMATION
  Report Type: 
  Country: None (occurrence: None)
  Receive Date: 20091216
  Receipt Date: 20091208
  Transmission Date: 20100525
  Serious: Yes (Hospitalization)
  Sender: FDA-Public Use
  Company Number: 2007SP022497

PATIENT
  Age: 48 Year
  Sex: Male
  Weight: 59 kg

DRUGS (11)
  1. LONAFARNIB (S-P) [Suspect]
     Indication: GLIOBLASTOMA MULTIFORME
     Dosage: 150 MG; BID; PO
     Route: 048
     Dates: start: 20071001, end: 20071029
  2. TEMODAR [Suspect]
     Indication: GLIOBLASTOMA MULTIFORME
     Dosage: 150 MG/M2; QD; PO
     Route: 048
     Dates: start: 20071001, end: 20071005
  3. KEPPRA [Concomitant]
  4. DECADRON [Concomitant]
  5. ANZEMET [Concomitant]
  6. MELATONIN [Concomitant]
  7. BOSWELLIA [Concomitant]
  8. ZINC SULFATE [Concomitant]
  9. FISH OIL [Concomitant]
  10. MULTI-VITAMIN [Concomitant]
  11. SELENIUM [Concomitant]

REACTIONS (10)
  - ABASIA [None]
  - CENTRAL NERVOUS SYSTEM LESION [None]
  - HYPOAESTHESIA [None]
  - HYPOTENSION [None]
  - MUSCULAR WEAKNESS [None]
  - MYELITIS TRANSVERSE [None]
  - PARAPLEGIA [None]
  - SENSORY DISTURBANCE [None]
  - SPINAL CORD OEDEMA [None]
  - VIRAL INFECTION [None]
